FAERS Safety Report 5978532-4 (Version None)
Quarter: 2008Q4

REPORT INFORMATION
  Report Type: 
  Country: None (occurrence: None)
  Receive Date: 20081204
  Receipt Date: 20080721
  Transmission Date: 20090506
  Serious: No
  Sender: FDA-Public Use
  Company Number: US-BAYER-200714196BCC

PATIENT
  Age: 13 Year
  Sex: Male
  Weight: 83 kg

DRUGS (3)
  1. ALEVE [Suspect]
     Dosage: UNIT DOSE: 220 MG
     Route: 048
     Dates: start: 20071212, end: 20071212
  2. STRATTERA [Concomitant]
  3. UNSPECIFIED INHALER [Concomitant]

REACTIONS (1)
  - NO ADVERSE EVENT [None]
